FAERS Safety Report 17931212 (Version 1)
Quarter: 2020Q2

REPORT INFORMATION
  Report Type: Spontaneous
  Country: FR (occurrence: FR)
  Receive Date: 20200623
  Receipt Date: 20200623
  Transmission Date: 20200714
  Serious: Yes (Death, Hospitalization)
  Sender: FDA-Public Use
  Company Number: NVSC2020FR175794

PATIENT
  Age: 88 Year
  Sex: Male
  Weight: 63 kg

DRUGS (2)
  1. CANDESARTAN CILEXETIL. [Concomitant]
     Active Substance: CANDESARTAN CILEXETIL
     Indication: PRODUCT USED FOR UNKNOWN INDICATION
     Dosage: 8 MG, QD
     Route: 048
  2. AMIODARONE [Suspect]
     Active Substance: AMIODARONE
     Indication: CARDIAC FAILURE
     Dosage: 200 MG, QOD
     Route: 065
     Dates: start: 20181223, end: 20190314

REACTIONS (2)
  - Hypothyroidism [Not Recovered/Not Resolved]
  - Lung disorder [Fatal]

NARRATIVE: CASE EVENT DATE: 20190225
